FAERS Safety Report 25543392 (Version 3)
Quarter: 2025Q3

REPORT INFORMATION
  Report Type: Spontaneous
  Country: JP (occurrence: JP)
  Receive Date: 20250711
  Receipt Date: 20250729
  Transmission Date: 20251021
  Serious: Yes (Death)
  Sender: NOVARTIS
  Company Number: JP-002147023-NVSJ2025JP007276

PATIENT
  Sex: Male

DRUGS (1)
  1. TISAGENLECLEUCEL [Suspect]
     Active Substance: TISAGENLECLEUCEL
     Indication: Diffuse large B-cell lymphoma
     Route: 065

REACTIONS (4)
  - Diffuse large B-cell lymphoma recurrent [Fatal]
  - Pleural effusion [Fatal]
  - Respiratory failure [Fatal]
  - Drug ineffective [Unknown]
